FAERS Safety Report 5440895-6 (Version None)
Quarter: 2007Q3

REPORT INFORMATION
  Report Type: 
  Country: None (occurrence: None)
  Receive Date: 20070831
  Receipt Date: 20070821
  Transmission Date: 20080115
  Serious: Yes (Hospitalization)
  Sender: FDA-Public Use
  Company Number: US-PFIZER INC-2007069179

PATIENT
  Sex: Male
  Weight: 105 kg

DRUGS (7)
  1. SUTENT [Suspect]
     Indication: RENAL CANCER METASTATIC
     Route: 048
     Dates: start: 20061120
  2. SYNTHROID [Concomitant]
     Route: 048
  3. CATAPRES [Concomitant]
     Route: 048
  4. COZAAR [Concomitant]
     Dosage: TEXT:100MG AM, 50MG PM
     Route: 048
     Dates: start: 20060213
  5. LABETALOL HCL [Concomitant]
     Route: 048
     Dates: start: 20050201
  6. CENTRUM SILVER [Concomitant]
     Route: 048
     Dates: start: 20040419
  7. ASPIRIN [Concomitant]
     Dates: start: 20040419

REACTIONS (1)
  - MYOCARDIAL INFARCTION [None]
